FAERS Safety Report 7638727-0 (Version None)
Quarter: 2011Q3

REPORT INFORMATION
  Report Type: 
  Country: None (occurrence: None)
  Receive Date: 20110727
  Receipt Date: 20110720
  Transmission Date: 20111222
  Serious: Yes (Hospitalization)
  Sender: FDA-Public Use
  Company Number: FR-ROCHE-771852

PATIENT
  Sex: Male

DRUGS (3)
  1. LANTUS [Concomitant]
     Route: 058
     Dates: start: 20101201
  2. HUMALOG [Concomitant]
     Route: 058
     Dates: start: 20101201
  3. TAMIFLU [Suspect]
     Route: 048
     Dates: start: 20110117, end: 20110127

REACTIONS (1)
  - NEURALGIA [None]
